FAERS Safety Report 4832371-6 (Version None)
Quarter: 2005Q4

REPORT INFORMATION
  Report Type: 
  Country: None (occurrence: None)
  Receive Date: 20051117
  Receipt Date: 20051107
  Transmission Date: 20060501
  Serious: Yes (Hospitalization, Other)
  Sender: FDA-Public Use
  Company Number: USA0508106194

PATIENT
  Sex: Female

DRUGS (3)
  1. FORTEO [Suspect]
  2. LOPRESSOR [Concomitant]
  3. LISINOPRIL [Concomitant]

REACTIONS (2)
  - DEHYDRATION [None]
  - RENAL FAILURE ACUTE [None]
